FAERS Safety Report 19009423 (Version 1)
Quarter: 2021Q1

REPORT INFORMATION
  Report Type: Spontaneous
  Country: JP (occurrence: JP)
  Receive Date: 20210316
  Receipt Date: 20210316
  Transmission Date: 20210420
  Serious: Yes (Hospitalization, Other)
  Sender: FDA-Public Use
  Company Number: JP-BAYER-2021-034557

PATIENT
  Age: 23 Year
  Sex: Female
  Weight: 45 kg

DRUGS (3)
  1. YAZ [Suspect]
     Active Substance: DROSPIRENONE\ETHINYL ESTRADIOL
     Indication: DYSMENORRHOEA
  2. YAZ [Suspect]
     Active Substance: DROSPIRENONE\ETHINYL ESTRADIOL
     Indication: PREMENSTRUAL SYNDROME
  3. YAZ [Suspect]
     Active Substance: DROSPIRENONE\ETHINYL ESTRADIOL
     Indication: ENDOMETRIOSIS
     Dosage: 1 DF, QD
     Dates: start: 202006, end: 20210121

REACTIONS (17)
  - Coagulopathy [None]
  - Joint hyperextension [None]
  - Ataxia [Recovering/Resolving]
  - Dizziness [Recovering/Resolving]
  - Vertebral artery stenosis [None]
  - Hepatic function abnormal [None]
  - Cerebellar infarction [Recovered/Resolved]
  - Vertebral artery dissection [Recovering/Resolving]
  - Nystagmus [Recovering/Resolving]
  - Loss of consciousness [Recovering/Resolving]
  - Vomiting [Recovered/Resolved]
  - Presyncope [Recovering/Resolving]
  - Renal impairment [None]
  - Cerebellar infarction [None]
  - Ehlers-Danlos syndrome [None]
  - Vertigo [Recovered/Resolved]
  - Headache [Recovering/Resolving]

NARRATIVE: CASE EVENT DATE: 20201128
